FAERS Safety Report 7976225-5 (Version None)
Quarter: 2011Q4

REPORT INFORMATION
  Report Type: 
  Country: None (occurrence: None)
  Receive Date: 20111213
  Receipt Date: 20111014
  Transmission Date: 20120403
  Serious: No
  Sender: FDA-Public Use
  Company Number: US-AMGEN-USASP2011053260

PATIENT
  Age: 52 Year
  Sex: Female

DRUGS (1)
  1. ENBREL [Suspect]
     Indication: ANKYLOSING SPONDYLITIS
     Dosage: 50 MG, QWK
     Dates: start: 20070601

REACTIONS (9)
  - WEIGHT INCREASED [None]
  - FATIGUE [None]
  - BACK PAIN [None]
  - ABDOMINAL DISCOMFORT [None]
  - MALAISE [None]
  - SOMNOLENCE [None]
  - DRUG EFFECT DELAYED [None]
  - HEADACHE [None]
  - WEIGHT LOSS POOR [None]
